FAERS Safety Report 25558538 (Version 2)
Quarter: 2025Q4

REPORT INFORMATION
  Report Type: Spontaneous
  Country: US (occurrence: US)
  Receive Date: 20250715
  Receipt Date: 20251007
  Transmission Date: 20260117
  Serious: No
  Sender: INTRABIO
  Company Number: US-IBO-202500094

PATIENT
  Age: 38 Year
  Sex: Male
  Weight: 143 kg

DRUGS (8)
  1. SIMPONI [Concomitant]
     Active Substance: GOLIMUMAB
     Route: 065
  2. OMEPRAZOLE [Concomitant]
     Active Substance: OMEPRAZOLE
     Route: 065
  3. ATORVASTATIN [Concomitant]
     Active Substance: ATORVASTATIN
     Route: 065
  4. LISINOPRIL [Concomitant]
     Active Substance: LISINOPRIL
     Route: 065
  5. AMANTADINE [Concomitant]
     Active Substance: AMANTADINE
     Route: 065
  6. MIGLUSTAT [Concomitant]
     Active Substance: MIGLUSTAT
     Route: 065
  7. AQNEURSA [Suspect]
     Active Substance: LEVACETYLLEUCINE
     Indication: Product used for unknown indication
     Dosage: AQNEURSA 1 GRAM SACHET ?TAKE 2 PACKETS IN THE MORNING, 1 PACKET IN THE AFTERNOON, AND 1 PACKET IN TH
     Route: 065
     Dates: start: 20250630
  8. AQNEURSA [Suspect]
     Active Substance: LEVACETYLLEUCINE
     Indication: Product used for unknown indication
     Dosage: AQNEURSA 1 GRAM SACHET??TAKE 2 PACKETS IN THE MORNING, 1 PACKET IN THE AFTERNOON, AND 1 PACKET IN TH
     Route: 065
     Dates: start: 20241108, end: 20250505

REACTIONS (2)
  - Frequent bowel movements [Unknown]
  - Fall [Not Recovered/Not Resolved]
